FAERS Safety Report 11679693 (Version 3)
Quarter: 2015Q4

REPORT INFORMATION
  Report Type: Spontaneous
  Country: US (occurrence: US)
  Receive Date: 20151027
  Receipt Date: 20151120
  Transmission Date: 20160304
  Serious: No
  Sender: FDA-Public Use
  Company Number: US-ELI_LILLY_AND_COMPANY-US201001003310

PATIENT
  Age: 77 Year
  Sex: Female

DRUGS (7)
  1. FORTEO [Suspect]
     Active Substance: TERIPARATIDE
     Indication: OSTEOPOROSIS
     Dosage: 20 UG, DAILY (1/D)
     Dates: start: 20090922
  2. FORTEO [Suspect]
     Active Substance: TERIPARATIDE
     Dosage: 20 UG, DAILY (1/D)
     Dates: end: 201109
  3. VACCINE, INFLUENZAE [Concomitant]
  4. FORTEO [Suspect]
     Active Substance: TERIPARATIDE
     Dosage: 20 UG, QD
  5. ZITHROMAX [Concomitant]
     Active Substance: AZITHROMYCIN DIHYDRATE
  6. AVALOX [Concomitant]
     Active Substance: MOXIFLOXACIN HYDROCHLORIDE
  7. LUCENTIS [Concomitant]
     Active Substance: RANIBIZUMAB
     Indication: MACULAR DEGENERATION

REACTIONS (17)
  - Asthenia [Unknown]
  - Hypercalcaemia [Unknown]
  - Hypotension [Unknown]
  - Asthenia [Unknown]
  - Medication error [Unknown]
  - Inappropriate schedule of drug administration [Unknown]
  - Breath sounds abnormal [Unknown]
  - Tracheostomy malfunction [Recovered/Resolved]
  - Fatigue [Unknown]
  - Drug dose omission [Unknown]
  - Dyspnoea [Not Recovered/Not Resolved]
  - Respiratory tract congestion [Recovered/Resolved]
  - Hypertension [Unknown]
  - Muscle disorder [Unknown]
  - Fall [Unknown]
  - Malaise [Unknown]
  - Arrhythmia [Recovered/Resolved]

NARRATIVE: CASE EVENT DATE: 20091218
